FAERS Safety Report 22162227 (Version 2)
Quarter: 2024Q1

REPORT INFORMATION
  Report Type: Spontaneous
  Country: US (occurrence: US)
  Receive Date: 20230331
  Receipt Date: 20240314
  Transmission Date: 20240410
  Serious: No
  Sender: FDA-Public Use
  Company Number: US-BRISTOL-MYERS SQUIBB COMPANY-2023-045456

PATIENT
  Age: 68 Year
  Sex: Male

DRUGS (2)
  1. REVLIMID [Suspect]
     Active Substance: LENALIDOMIDE
     Indication: Plasma cell myeloma
     Route: 048
     Dates: start: 202401
  2. NINLARO [Concomitant]
     Active Substance: IXAZOMIB CITRATE
     Indication: Product used for unknown indication
     Dosage: EVERY MONDAY ON DAYS 1, 8, 15 OF A 28 DAY CYCLE.

REACTIONS (6)
  - Product dose omission issue [Unknown]
  - Paraesthesia [Unknown]
  - Peripheral swelling [Unknown]
  - Burning sensation [Unknown]
  - Emergency care examination [Unknown]
  - Off label use [Unknown]

NARRATIVE: CASE EVENT DATE: 20230329
